FAERS Safety Report 8366436-1 (Version None)
Quarter: 2012Q2

REPORT INFORMATION
  Report Type: 
  Country: None (occurrence: None)
  Receive Date: 20120517
  Receipt Date: 20120514
  Transmission Date: 20120825
  Serious: Yes (Hospitalization, Other)
  Sender: FDA-Public Use
  Company Number: US-BAYER-2012-044449

PATIENT
  Sex: Female

DRUGS (2)
  1. YASMIN [Suspect]
     Dosage: UNK
     Dates: start: 20020501, end: 20060627
  2. YAZ [Suspect]
     Dosage: UNK
     Dates: start: 20060101

REACTIONS (10)
  - ANHEDONIA [None]
  - GENERAL PHYSICAL HEALTH DETERIORATION [None]
  - PAIN [None]
  - DYSPNOEA [None]
  - INJURY [None]
  - ANXIETY [None]
  - TRANSVERSE SINUS THROMBOSIS [None]
  - PULMONARY EMBOLISM [None]
  - EMOTIONAL DISTRESS [None]
  - MOBILITY DECREASED [None]
